FAERS Safety Report 6213740-9 (Version None)
Quarter: 2009Q2

REPORT INFORMATION
  Report Type: 
  Country: None (occurrence: None)
  Receive Date: 20090603
  Receipt Date: 20090527
  Transmission Date: 20091009
  Serious: Yes (Other)
  Sender: FDA-Public Use
  Company Number: CA-ABBOTT-09P-028-0570032-00

PATIENT
  Sex: Female
  Weight: 48.124 kg

DRUGS (1)
  1. HUMIRA [Suspect]
     Indication: CROHN'S DISEASE
     Route: 058
     Dates: start: 20090108, end: 20090215

REACTIONS (3)
  - ENTEROCOLONIC FISTULA [None]
  - POST PROCEDURAL COMPLICATION [None]
  - PSOAS ABSCESS [None]
